FAERS Safety Report 14265708 (Version 14)
Quarter: 2018Q3

REPORT INFORMATION
  Report Type: Report from Study
  Country: None (occurrence: DE)
  Receive Date: 20171208
  Receipt Date: 20180720
  Transmission Date: 20181010
  Serious: Yes (Life-Threatening, Hospitalization, Other)
  Sender: FDA-Public Use
  Company Number: DE-BAUSCH-BL-2017-032550

PATIENT
  Age: 69 Year
  Sex: Male
  Weight: 90 kg

DRUGS (30)
  1. DEXAMETHASONE. [Suspect]
     Active Substance: DEXAMETHASONE
     Indication: PROCEDURAL NAUSEA
     Route: 048
     Dates: start: 20170828, end: 20170831
  2. COBIMETINIB. [Suspect]
     Active Substance: COBIMETINIB
     Indication: METASTATIC MALIGNANT MELANOMA
     Route: 048
     Dates: start: 20170823, end: 20170828
  3. VEMURAFENIB. [Suspect]
     Active Substance: VEMURAFENIB
     Route: 048
     Dates: start: 20170904, end: 20170906
  4. DEXAMETHASONE. [Suspect]
     Active Substance: DEXAMETHASONE
     Indication: BRAIN OEDEMA
     Dosage: DAILY (1)
     Route: 001
     Dates: start: 20170929
  5. MONO EMBOLEX [Concomitant]
     Active Substance: CERTOPARIN SODIUM
     Indication: PROPHYLAXIS
     Route: 058
     Dates: start: 20170131
  6. DEXAMETHASONE. [Suspect]
     Active Substance: DEXAMETHASONE
     Route: 048
     Dates: start: 20170929
  7. COBIMETINIB. [Suspect]
     Active Substance: COBIMETINIB
     Route: 048
     Dates: start: 20180423, end: 20180514
  8. SIMVASTATIN. [Concomitant]
     Active Substance: SIMVASTATIN
     Indication: VASCULAR GRAFT
     Route: 048
     Dates: start: 20150501
  9. ASPIRIN. [Concomitant]
     Active Substance: ASPIRIN
     Indication: HYPERTENSION
  10. RAMIPRIL. [Concomitant]
     Active Substance: RAMIPRIL
     Indication: HYPERTENSION
     Route: 048
     Dates: start: 20140501, end: 20171102
  11. RAMIPRIL. [Concomitant]
     Active Substance: RAMIPRIL
     Indication: VASCULAR GRAFT
  12. METOPROLOL. [Concomitant]
     Active Substance: METOPROLOL
     Indication: HYPERTENSION
  13. DEXAMETHASONE. [Suspect]
     Active Substance: DEXAMETHASONE
     Indication: BRAIN OEDEMA
     Route: 048
     Dates: start: 20180409, end: 20180515
  14. DEXAMETHASONE. [Suspect]
     Active Substance: DEXAMETHASONE
     Route: 048
     Dates: start: 20180516
  15. COBIMETINIB. [Suspect]
     Active Substance: COBIMETINIB
     Indication: MALIGNANT MELANOMA
     Route: 048
     Dates: start: 20170831, end: 20170903
  16. VEMURAFENIB. [Suspect]
     Active Substance: VEMURAFENIB
     Indication: MALIGNANT MELANOMA
     Dosage: DOSE 240 MG X 4 (960 MG)
     Route: 048
     Dates: start: 20170823, end: 20170826
  17. VEMURAFENIB. [Suspect]
     Active Substance: VEMURAFENIB
     Route: 048
     Dates: start: 20170907
  18. VEMURAFENIB. [Suspect]
     Active Substance: VEMURAFENIB
     Route: 048
     Dates: start: 20170831, end: 20170903
  19. LEVETIRACETAM. [Concomitant]
     Active Substance: LEVETIRACETAM
     Indication: METASTASES TO CENTRAL NERVOUS SYSTEM
     Dosage: 12 HOURS
     Route: 048
  20. PANTOPRAZOL [Concomitant]
     Active Substance: PANTOPRAZOLE SODIUM
     Indication: PRODUCT USED FOR UNKNOWN INDICATION
     Route: 048
     Dates: start: 20170201
  21. DEXAMETHASONE. [Suspect]
     Active Substance: DEXAMETHASONE
     Indication: VISION BLURRED
     Route: 048
     Dates: start: 20170904, end: 20170921
  22. DEXAMETHASONE. [Suspect]
     Active Substance: DEXAMETHASONE
     Indication: PROCEDURAL VOMITING
     Route: 048
     Dates: start: 20170922, end: 20180123
  23. DEXAMETHASONE. [Suspect]
     Active Substance: DEXAMETHASONE
     Indication: PROCEDURAL HEADACHE
     Route: 048
     Dates: start: 20180124
  24. NOVAMINSULFON [Concomitant]
     Active Substance: METAMIZOLE
     Indication: PAIN PROPHYLAXIS
     Route: 048
  25. SIMVASTATIN. [Concomitant]
     Active Substance: SIMVASTATIN
     Indication: HYPERTENSION
  26. METOPROLOL. [Concomitant]
     Active Substance: METOPROLOL
     Indication: VASCULAR GRAFT
     Dosage: 12 HOURS
     Route: 048
     Dates: start: 20140501
  27. DEXAMETHASONE. [Suspect]
     Active Substance: DEXAMETHASONE
     Indication: METASTASES TO CENTRAL NERVOUS SYSTEM
     Route: 048
     Dates: start: 20170901, end: 20170903
  28. COBIMETINIB. [Suspect]
     Active Substance: COBIMETINIB
     Route: 048
     Dates: start: 20170904, end: 20180327
  29. VEMURAFENIB. [Suspect]
     Active Substance: VEMURAFENIB
     Route: 048
     Dates: start: 20170826, end: 20170828
  30. ASPIRIN. [Concomitant]
     Active Substance: ASPIRIN
     Indication: VASCULAR GRAFT
     Route: 048
     Dates: start: 20140501

REACTIONS (32)
  - Retinal cyst [Not Recovered/Not Resolved]
  - Retinopathy [Unknown]
  - Muscular weakness [Recovered/Resolved]
  - Dizziness [Unknown]
  - Monoparesis [Unknown]
  - Lymphoedema [Unknown]
  - Peripheral motor neuropathy [Unknown]
  - Intervertebral disc protrusion [Unknown]
  - Epidural lipomatosis [Unknown]
  - Peripheral nerve lesion [Unknown]
  - Subcutaneous abscess [Recovered/Resolved]
  - Dermal cyst [Not Recovered/Not Resolved]
  - Cough [Unknown]
  - Skin mass [Unknown]
  - Peripheral sensory neuropathy [Unknown]
  - Spinal osteoarthritis [Unknown]
  - Vision blurred [Not Recovered/Not Resolved]
  - Hyperkeratosis [Unknown]
  - Skin exfoliation [Unknown]
  - Fatigue [Not Recovered/Not Resolved]
  - Skin infection [Unknown]
  - Cataract [Unknown]
  - Dysgeusia [Unknown]
  - Photosensitivity reaction [Unknown]
  - Conjunctivitis [Not Recovered/Not Resolved]
  - Brain oedema [Not Recovered/Not Resolved]
  - Pain in extremity [Unknown]
  - Skin hypopigmentation [Not Recovered/Not Resolved]
  - Mucosal dryness [Unknown]
  - Small intestinal haemorrhage [Recovered/Resolved]
  - Metastases to central nervous system [Recovered/Resolved]
  - Hyperglycaemia [Recovering/Resolving]

NARRATIVE: CASE EVENT DATE: 20170823
